FAERS Safety Report 5369714-3 (Version None)
Quarter: 2007Q2

REPORT INFORMATION
  Report Type: 
  Country: None (occurrence: None)
  Receive Date: 20070625
  Receipt Date: 20070613
  Transmission Date: 20071010
  Serious: Yes (Other)
  Sender: FDA-Public Use
  Company Number: BR-PFIZER INC-2007049010

PATIENT
  Sex: Female

DRUGS (1)
  1. VFEND [Suspect]
     Indication: MENINGITIS
     Route: 048
     Dates: start: 20061101, end: 20061101

REACTIONS (1)
  - MENINGITIS [None]
